FAERS Safety Report 8500080-8 (Version None)
Quarter: 2012Q3

REPORT INFORMATION
  Report Type: 
  Country: None (occurrence: None)
  Receive Date: 20120710
  Receipt Date: 20120703
  Transmission Date: 20120928
  Serious: Yes (Death, Hospitalization, Other)
  Sender: FDA-Public Use
  Company Number: JP-CELGENEUS-087-50794-12070689

PATIENT
  Sex: Male
  Weight: 44 kg

DRUGS (28)
  1. MUCOSTA [Concomitant]
     Route: 065
     Dates: start: 20120203, end: 20120305
  2. VANCOMYCIN [Concomitant]
     Route: 065
     Dates: start: 20120118, end: 20120124
  3. RECOMODULIN [Concomitant]
     Route: 065
     Dates: start: 20120305, end: 20120308
  4. VIDAZA [Suspect]
     Dosage: 75 MILLIGRAM/SQ. METER
     Route: 041
     Dates: start: 20111220, end: 20111226
  5. MAXIPIME [Concomitant]
     Route: 065
     Dates: start: 20120110, end: 20120116
  6. PREDNISOLONE [Concomitant]
     Route: 065
     Dates: start: 20120119, end: 20120217
  7. MAGMITT [Concomitant]
     Route: 065
     Dates: start: 20111223, end: 20120120
  8. MEROPENEM [Concomitant]
     Route: 065
     Dates: start: 20120126, end: 20120208
  9. VANCOMYCIN [Concomitant]
     Route: 065
     Dates: start: 20120301, end: 20120307
  10. PREDNISOLONE [Concomitant]
     Route: 065
     Dates: start: 20120117, end: 20120117
  11. DIFLUCAN [Concomitant]
     Route: 065
     Dates: start: 20111222, end: 20120305
  12. ZYVOX [Concomitant]
     Route: 065
     Dates: start: 20120126, end: 20120208
  13. TARGOCID [Concomitant]
     Route: 065
     Dates: start: 20120217, end: 20120229
  14. ALBUMINAR [Concomitant]
     Route: 065
     Dates: start: 20120303, end: 20120307
  15. LENDORMIN D [Concomitant]
     Route: 065
     Dates: start: 20111225, end: 20120120
  16. NEUTROGIN [Concomitant]
     Route: 065
     Dates: start: 20120118, end: 20120226
  17. NEOPHYLLIN [Concomitant]
     Route: 050
     Dates: start: 20120117, end: 20120117
  18. GAMIMUNE N 5% [Concomitant]
     Route: 065
     Dates: start: 20120119, end: 20120122
  19. CIPROFLOXACIN HCL [Concomitant]
     Route: 065
     Dates: start: 20120223, end: 20120229
  20. ASTOMIN [Concomitant]
     Route: 065
     Dates: start: 20111226, end: 20120101
  21. FAMOSTAGINE-D [Concomitant]
     Route: 065
     Dates: start: 20120117, end: 20120202
  22. VFEND [Concomitant]
     Route: 065
     Dates: start: 20120202, end: 20120215
  23. RABEPRAZOLE SODIUM [Concomitant]
     Route: 065
     Dates: start: 20120203, end: 20120305
  24. CARBENIN [Concomitant]
     Route: 065
     Dates: start: 20120301, end: 20120307
  25. IMIPENEM AND CILASTATIN SODIUM [Concomitant]
     Route: 065
     Dates: start: 20120209, end: 20120222
  26. CARBENIN [Concomitant]
     Route: 065
     Dates: start: 20120117, end: 20120124
  27. FUROSEMIDE [Concomitant]
     Route: 065
     Dates: start: 20120117, end: 20120308
  28. NEOPHYLLIN [Concomitant]
     Route: 050
     Dates: start: 20120119, end: 20120119

REACTIONS (10)
  - RENAL FAILURE ACUTE [None]
  - INSOMNIA [None]
  - CARDIAC FAILURE [None]
  - PNEUMONIA [None]
  - GASTRITIS HAEMORRHAGIC [None]
  - PLEURAL EFFUSION [None]
  - CONSTIPATION [None]
  - DISSEMINATED INTRAVASCULAR COAGULATION [None]
  - PHARYNGITIS [None]
  - BRONCHITIS [None]
